FAERS Safety Report 6534536-4 (Version None)
Quarter: 2010Q1

REPORT INFORMATION
  Report Type: 
  Country: None (occurrence: None)
  Receive Date: 20100112
  Receipt Date: 20100104
  Transmission Date: 20100710
  Serious: Yes (Other)
  Sender: FDA-Public Use
  Company Number: BR-JNJFOC-20100100559

PATIENT
  Age: 31 Year
  Sex: Female
  Weight: 73 kg

DRUGS (2)
  1. INVEGA [Suspect]
     Indication: SCHIZOPHRENIA
     Route: 048
  2. OTHER DRUGS (UNSPECIFIED) [Suspect]
     Indication: SCHIZOPHRENIA

REACTIONS (2)
  - SOMNOLENCE [None]
  - WEIGHT INCREASED [None]
